FAERS Safety Report 8535825-4 (Version None)
Quarter: 2012Q3

REPORT INFORMATION
  Report Type: 
  Country: None (occurrence: None)
  Receive Date: 20120725
  Receipt Date: 20120711
  Transmission Date: 20120928
  Serious: Yes (Other)
  Sender: FDA-Public Use
  Company Number: TR-JNJFOC-20120707984

PATIENT

DRUGS (4)
  1. RISPERDAL [Suspect]
     Indication: SCHIZOPHRENIA
     Dosage: THREE MONTHS
     Route: 065
  2. RISPERDAL [Suspect]
     Indication: DEPRESSION
     Dosage: THREE MONTHS
     Route: 065
  3. AKINETON [Suspect]
     Indication: SCHIZOPHRENIA
     Dosage: THREE MONTHS
     Route: 065
  4. AKINETON [Suspect]
     Indication: DEPRESSION
     Dosage: THREE MONTHS
     Route: 065

REACTIONS (2)
  - VASCULAR OCCLUSION [None]
  - NERVOUS SYSTEM DISORDER [None]
